FAERS Safety Report 5301615-9 (Version None)
Quarter: 2007Q2

REPORT INFORMATION
  Report Type: 
  Country: None (occurrence: None)
  Receive Date: 20070419
  Receipt Date: 20070412
  Transmission Date: 20071010
  Serious: Yes (Other)
  Sender: FDA-Public Use
  Company Number: US-BAYER-200710732BCC

PATIENT
  Age: 63 Year
  Sex: Female
  Weight: 69 kg

DRUGS (9)
  1. ALEVE [Suspect]
     Indication: BACK PAIN
     Dosage: TOTAL DAILY DOSE: 880 MG  UNIT DOSE: 220 MG
     Route: 048
     Dates: start: 20070306
  2. ALEVE [Suspect]
     Dosage: AS USED: 440/220 MG  UNIT DOSE: 220 MG
     Route: 048
     Dates: start: 20070305
  3. ALEVE [Suspect]
     Dosage: TOTAL DAILY DOSE: 440 MG  UNIT DOSE: 220 MG
     Route: 048
     Dates: start: 20070302
  4. ALEVE [Suspect]
     Dosage: TOTAL DAILY DOSE: 220 MG  UNIT DOSE: 220 MG
     Route: 048
     Dates: start: 20070301
  5. ZANTAC [Concomitant]
  6. NATURE BOUNTY VITAMIN [Concomitant]
  7. NATURE'S BOUNTY BIOTIN SUPPLEMENT [Concomitant]
  8. TETRACYCLINE [Concomitant]
     Indication: ROSACEA
     Dates: start: 20070221, end: 20070227
  9. EXTRA STRENGTH TYLENOL [Concomitant]
     Indication: PAIN
     Dates: start: 20070221, end: 20070227

REACTIONS (6)
  - ARTHRALGIA [None]
  - BACK PAIN [None]
  - BLOOD URINE PRESENT [None]
  - DYSURIA [None]
  - ESCHERICHIA URINARY TRACT INFECTION [None]
  - POLLAKIURIA [None]
